FAERS Safety Report 19730108 (Version 1)
Quarter: 2021Q3

REPORT INFORMATION
  Report Type: Report from Study
  Country: DE (occurrence: DE)
  Receive Date: 20210820
  Receipt Date: 20210820
  Transmission Date: 20211014
  Serious: Yes (Death)
  Sender: FDA-Public Use
  Company Number: DE-JAZZ-2021-DE-014726

PATIENT
  Age: 68 Year
  Sex: Male
  Weight: 87 kg

DRUGS (8)
  1. CPX?351 [Suspect]
     Active Substance: CYTARABINE\DAUNORUBICIN
     Dosage: DAUNORUBICIN 44 MG AND CYTARABINE 100 MG/M2
     Route: 042
     Dates: start: 20210726, end: 20210730
  2. MEROPENEM. [Concomitant]
     Active Substance: MEROPENEM
     Indication: FEBRILE NEUTROPENIA
     Dosage: 1 GRAM, TID
     Route: 042
     Dates: start: 20210731, end: 20210809
  3. RAMIPRIL. [Concomitant]
     Active Substance: RAMIPRIL
     Indication: HYPERTENSION
     Dosage: 5 MILLIGRAM, QD
     Route: 048
     Dates: start: 20210805, end: 20210809
  4. CANCIDAS [Concomitant]
     Active Substance: CASPOFUNGIN ACETATE
     Indication: FEBRILE NEUTROPENIA
     Dosage: 50 MILLIGRAM, QD
     Route: 042
     Dates: end: 20210809
  5. ACICLOVIR [Concomitant]
     Active Substance: ACYCLOVIR
     Indication: HERPES SIMPLEX
     Dosage: 750 MILLIGRAM, TID
     Route: 042
     Dates: start: 20210808, end: 20210809
  6. KALINOR [POTASSIUM CHLORIDE] [Concomitant]
     Active Substance: POTASSIUM CHLORIDE
     Indication: HYPOKALAEMIA
     Dosage: 40 MMOL/L, QD
     Route: 048
     Dates: start: 20210809, end: 20210809
  7. AMLODIPINE [Concomitant]
     Active Substance: AMLODIPINE BESYLATE
     Indication: HYPERTONIA
     Dosage: 5 MILLIGRAM, QD
     Route: 048
     Dates: start: 20210809, end: 20210809
  8. DUODART [Concomitant]
     Active Substance: DUTASTERIDE\TAMSULOSIN
     Indication: BENIGN PROSTATIC HYPERPLASIA
     Dosage: 05/04, QD
     Route: 048
     Dates: start: 20210808, end: 20210809

REACTIONS (1)
  - Death [Fatal]

NARRATIVE: CASE EVENT DATE: 20210809
